FAERS Safety Report 5101240-9 (Version None)
Quarter: 2006Q3

REPORT INFORMATION
  Report Type: 
  Country: None (occurrence: None)
  Receive Date: 20060911
  Receipt Date: 20060901
  Transmission Date: 20061208
  Serious: Yes (Other)
  Sender: FDA-Public Use
  Company Number: CH-ROCHE-461691

PATIENT
  Age: 30 Year
  Sex: Male
  Weight: 60 kg

DRUGS (10)
  1. VALIUM [Suspect]
     Indication: DRUG USE FOR UNKNOWN INDICATION
     Route: 048
  2. VALIUM [Suspect]
     Route: 048
  3. DORMICUM (ORAL) [Suspect]
     Indication: DRUG USE FOR UNKNOWN INDICATION
     Route: 048
  4. DORMICUM (ORAL) [Suspect]
     Route: 048
  5. METHADON [Concomitant]
     Dosage: INDICATION: HEROIN.
     Route: 048
  6. VIREAD [Concomitant]
     Indication: ASYMPTOMATIC HIV INFECTION
     Route: 048
     Dates: start: 20060101
  7. EMTRICITABINE [Concomitant]
     Indication: ASYMPTOMATIC HIV INFECTION
     Route: 048
     Dates: start: 20060101
  8. REYATAZ [Concomitant]
     Indication: ASYMPTOMATIC HIV INFECTION
     Route: 048
     Dates: start: 20060101
  9. NORVIR [Concomitant]
     Indication: ASYMPTOMATIC HIV INFECTION
     Route: 048
     Dates: start: 20060101
  10. SERESTA [Concomitant]
     Route: 048

REACTIONS (2)
  - COMA [None]
  - SOMNOLENCE [None]
